FAERS Safety Report 5157742-2 (Version None)
Quarter: 2006Q4

REPORT INFORMATION
  Report Type: 
  Country: None (occurrence: None)
  Receive Date: 20061127
  Receipt Date: 20061115
  Transmission Date: 20070319
  Serious: Yes (Life-Threatening)
  Sender: FDA-Public Use
  Company Number: 2006CG01877

PATIENT
  Age: 60 Year
  Sex: Male
  Weight: 65 kg

DRUGS (5)
  1. XYLOCAINE [Suspect]
     Indication: LOCAL ANAESTHESIA
     Route: 053
  2. XYLOCAINE [Suspect]
     Route: 053
  3. NAROPEINE [Suspect]
     Indication: LOCAL ANAESTHESIA
     Route: 053
  4. HYPNOVEL [Concomitant]
  5. SUFENTANIL CITRATE [Concomitant]

REACTIONS (7)
  - AGITATION [None]
  - ARRHYTHMIA [None]
  - CONDUCTION DISORDER [None]
  - ELECTROCARDIOGRAM REPOLARISATION ABNORMALITY [None]
  - MALAISE [None]
  - MUSCULOSKELETAL CHEST PAIN [None]
  - OVERDOSE [None]
